FAERS Safety Report 14127819 (Version 2)
Quarter: 2018Q2

REPORT INFORMATION
  Report Type: Spontaneous
  Country: US (occurrence: US)
  Receive Date: 20171026
  Receipt Date: 20180530
  Transmission Date: 20180711
  Serious: No
  Sender: FDA-Public Use
  Company Number: US-PFIZER INC-2017458852

PATIENT
  Sex: Female

DRUGS (1)
  1. XALKORI [Suspect]
     Active Substance: CRIZOTINIB
     Indication: LUNG NEOPLASM MALIGNANT
     Dosage: 250 MG, 2X/DAY
     Route: 048
     Dates: start: 201506

REACTIONS (5)
  - Dizziness [Not Recovered/Not Resolved]
  - Ingrowing nail [Unknown]
  - Headache [Unknown]
  - Malaise [Unknown]
  - Dehydration [Unknown]
